FAERS Safety Report 4504309-2 (Version None)
Quarter: 2004Q4

REPORT INFORMATION
  Report Type: 
  Country: None (occurrence: None)
  Receive Date: 20041115
  Receipt Date: 20041027
  Transmission Date: 20050328
  Serious: Yes (Death, Hospitalization, Other)
  Sender: FDA-Public Use
  Company Number: 14991

PATIENT
  Age: 71 Year
  Sex: Female
  Weight: 81.1939 kg

DRUGS (1)
  1. DAUNORUBICIN HCL [Suspect]
     Indication: ACUTE MYELOID LEUKAEMIA
     Dosage: 45 MG/M2
     Dates: start: 20040824, end: 20040826

REACTIONS (7)
  - CHEST WALL PAIN [None]
  - DYSPNOEA [None]
  - EPISTAXIS [None]
  - HYPOXIA [None]
  - PLATELET COUNT DECREASED [None]
  - PNEUMONITIS [None]
  - WHITE BLOOD CELL COUNT DECREASED [None]
